FAERS Safety Report 5848976-X (Version None)
Quarter: 2008Q3

REPORT INFORMATION
  Report Type: 
  Country: None (occurrence: None)
  Receive Date: 20080818
  Receipt Date: 20080818
  Transmission Date: 20090109
  Serious: Yes (Disabling)
  Sender: FDA-Public Use
  Company Number: None

PATIENT
  Age: 65 Year
  Sex: Male
  Weight: 81.6475 kg

DRUGS (3)
  1. LISINOPRIL 5MG OPR119 LUPINPHARM 09-16-31-62-96 [Suspect]
     Indication: PROPHYLAXIS
     Dosage: 5MG 1 DAY
     Dates: start: 20060601, end: 20080601
  2. LISINOPRIL 5MG OPR119 LUPINPHARM 09-16-31-62-96 [Suspect]
     Indication: RENAL DISORDER
     Dosage: 5MG 1 DAY
     Dates: start: 20060601, end: 20080601
  3. VYTORIN [Suspect]
     Indication: BLOOD CHOLESTEROL INCREASED
     Dosage: 10/40  1 DAY
     Dates: start: 20060601, end: 20080701

REACTIONS (4)
  - ASTHENIA [None]
  - FATIGUE [None]
  - MUSCLE ATROPHY [None]
  - MUSCULAR WEAKNESS [None]
